FAERS Safety Report 21937220 (Version 1)
Quarter: 2023Q1

REPORT INFORMATION
  Report Type: Spontaneous
  Country: US (occurrence: None)
  Receive Date: 20230131
  Receipt Date: 20230131
  Transmission Date: 20230418
  Serious: No
  Sender: FDA-Public Use
  Company Number: None

PATIENT
  Age: 64 Year
  Sex: Male

DRUGS (1)
  1. HUMIRA [Suspect]
     Active Substance: ADALIMUMAB
     Dosage: 40MG OTHER SUBCUTANEOUS
     Route: 058
     Dates: start: 202111

REACTIONS (1)
  - Femur fracture [None]

NARRATIVE: CASE EVENT DATE: 20230131
